FAERS Safety Report 21297338 (Version 1)
Quarter: 2022Q3

REPORT INFORMATION
  Report Type: Spontaneous
  Country: US (occurrence: None)
  Receive Date: 20220902
  Receipt Date: 20220902
  Transmission Date: 20221027
  Serious: Yes (Life-Threatening)
  Sender: FDA-Public Use
  Company Number: None

PATIENT
  Age: 70 Year
  Sex: Male

DRUGS (1)
  1. DEXAMETHASONE [Suspect]
     Active Substance: DEXAMETHASONE
     Dates: start: 20220529, end: 20220529

REACTIONS (4)
  - Loss of consciousness [None]
  - Hypotension [None]
  - Oxygen saturation decreased [None]
  - Tachycardia [None]

NARRATIVE: CASE EVENT DATE: 20220529
